FAERS Safety Report 14974491 (Version 1)
Quarter: 2018Q2

REPORT INFORMATION
  Report Type: Spontaneous
  Country: US (occurrence: US)
  Receive Date: 20180605
  Receipt Date: 20180605
  Transmission Date: 20180711
  Serious: Yes (Hospitalization)
  Sender: FDA-Public Use
  Company Number: US-MYLANLABS-2018M1035622

PATIENT

DRUGS (2)
  1. FENTANYL TRANSDERMAL SYSTEM [Suspect]
     Active Substance: FENTANYL
     Dosage: UNK
     Route: 062
  2. FENTANYL TRANSDERMAL SYSTEM [Suspect]
     Active Substance: FENTANYL
     Indication: PAIN
     Dosage: UNK
     Route: 062

REACTIONS (15)
  - Hiccups [Not Recovered/Not Resolved]
  - Product quality issue [Not Recovered/Not Resolved]
  - Lung disorder [Recovering/Resolving]
  - Body temperature increased [Recovering/Resolving]
  - Infection [Recovering/Resolving]
  - Product adhesion issue [Not Recovered/Not Resolved]
  - Malaise [Recovering/Resolving]
  - Hallucination [Recovering/Resolving]
  - Renal disorder [Recovering/Resolving]
  - Crohn^s disease [Not Recovered/Not Resolved]
  - Hyperhidrosis [Not Recovered/Not Resolved]
  - Movement disorder [Not Recovered/Not Resolved]
  - Blood glucose increased [Recovering/Resolving]
  - Heart rate abnormal [Recovering/Resolving]
  - Pneumonia [Recovering/Resolving]

NARRATIVE: CASE EVENT DATE: 2018
